FAERS Safety Report 16802041 (Version 1)
Quarter: 2019Q3

REPORT INFORMATION
  Report Type: Spontaneous
  Country: US (occurrence: US)
  Receive Date: 20190912
  Receipt Date: 20190912
  Transmission Date: 20191005
  Serious: Yes (Other)
  Sender: FDA-Public Use
  Company Number: US-GE HEALTHCARE LIFE SCIENCES-2019CSU004610

PATIENT
  Age: 68 Year
  Sex: Female
  Weight: 53.52 kg

DRUGS (5)
  1. OMNIPAQUE [Suspect]
     Active Substance: IOHEXOL
     Indication: COMPUTERISED TOMOGRAM PELVIS
  2. OMNIPAQUE [Suspect]
     Active Substance: IOHEXOL
     Indication: BACK PAIN
  3. METFORMIN [Concomitant]
     Active Substance: METFORMIN HYDROCHLORIDE
     Indication: DIABETES MELLITUS
     Dosage: UNK, BID (2 PER DAY)
     Route: 048
  4. OMNIPAQUE [Suspect]
     Active Substance: IOHEXOL
     Indication: COMPUTERISED TOMOGRAM ABDOMEN
     Dosage: 75 ML, SINGLE
     Route: 042
     Dates: start: 20190815, end: 20190815
  5. OMNIPAQUE [Suspect]
     Active Substance: IOHEXOL
     Indication: PELVIC PAIN

REACTIONS (2)
  - Dysphagia [Recovered/Resolved]
  - Throat tightness [Recovered/Resolved]

NARRATIVE: CASE EVENT DATE: 20190815
